FAERS Safety Report 25188957 (Version 1)
Quarter: 2025Q2

REPORT INFORMATION
  Report Type: Spontaneous
  Country: US (occurrence: US)
  Receive Date: 20250411
  Receipt Date: 20250411
  Transmission Date: 20250716
  Serious: No
  Sender: ROCHE
  Company Number: US-ROCHE-10000251862

PATIENT
  Age: 50 Year
  Sex: Female

DRUGS (1)
  1. ENSPRYNG [Suspect]
     Active Substance: SATRALIZUMAB-MWGE
     Indication: Neuromyelitis optica spectrum disorder
     Route: 065
     Dates: start: 202408

REACTIONS (4)
  - Therapeutic response shortened [Unknown]
  - Asthenia [Unknown]
  - Pain in extremity [Unknown]
  - Gait disturbance [Unknown]
